FAERS Safety Report 25640522 (Version 1)
Quarter: 2025Q3

REPORT INFORMATION
  Report Type: Spontaneous
  Country: US (occurrence: None)
  Receive Date: 20250801
  Receipt Date: 20250801
  Transmission Date: 20251021
  Serious: Yes (Life-Threatening)
  Sender: FDA-CTU
  Company Number: None

PATIENT
  Age: 77 Year
  Sex: Female

DRUGS (14)
  1. SYSTANE HYDRATION PF PRESERVATIVE FREE [Suspect]
     Active Substance: POLYETHYLENE GLYCOL 400\PROPYLENE GLYCOL
     Indication: Dry eye
     Route: 047
     Dates: start: 20250708, end: 20250708
  2. SYNTHROID [Concomitant]
     Active Substance: LEVOTHYROXINE SODIUM
  3. vitamins B [Concomitant]
  4. ASCORBIC ACID [Concomitant]
     Active Substance: ASCORBIC ACID
  5. vitamins D [Concomitant]
  6. vitamins E [Concomitant]
  7. CURCUMIN [Concomitant]
     Active Substance: CURCUMIN
  8. QUERCETIN [Concomitant]
     Active Substance: QUERCETIN
  9. GINKGO [Concomitant]
     Active Substance: GINKGO
  10. omega 3 oil [Concomitant]
  11. CALCIUM [Concomitant]
     Active Substance: CALCIUM
  12. MAGNESIUM [Concomitant]
     Active Substance: MAGNESIUM
  13. SELENIUM [Concomitant]
     Active Substance: SELENIUM
  14. ZINC [Concomitant]
     Active Substance: ZINC

REACTIONS (5)
  - Nausea [None]
  - Confusional state [None]
  - Dyspnoea [None]
  - Feeling cold [None]
  - Tremor [None]

NARRATIVE: CASE EVENT DATE: 20250708
